FAERS Safety Report 7521628-6 (Version None)
Quarter: 2011Q2

REPORT INFORMATION
  Report Type: 
  Country: None (occurrence: None)
  Receive Date: 20110524
  Receipt Date: 20110506
  Transmission Date: 20111010
  Serious: Yes (Other)
  Sender: FDA-Public Use
  Company Number: 2011P1006346

PATIENT
  Sex: Female

DRUGS (1)
  1. DEXEDRINE [Suspect]
     Indication: HEAD INJURY
     Dosage: 15 MG; QD; PO
     Route: 048
     Dates: start: 19960101

REACTIONS (5)
  - PRODUCT FORMULATION ISSUE [None]
  - MEMORY IMPAIRMENT [None]
  - THINKING ABNORMAL [None]
  - UNEVALUABLE EVENT [None]
  - APHASIA [None]
